FAERS Safety Report 6266379-3 (Version None)
Quarter: 2009Q3

REPORT INFORMATION
  Report Type: 
  Country: None (occurrence: None)
  Receive Date: 20090713
  Receipt Date: 20090708
  Transmission Date: 20100115
  Serious: Yes (Hospitalization)
  Sender: FDA-Public Use
  Company Number: ZA-PFIZER INC-2009238950

PATIENT
  Age: 53 Year

DRUGS (5)
  1. CELEBREX [Suspect]
     Indication: ARTHRITIS
     Route: 048
     Dates: start: 20070909, end: 20070910
  2. SYNAP FORTE [Concomitant]
  3. TEGRETOL [Concomitant]
  4. PURBAC [Concomitant]
  5. MORPHINE [Concomitant]

REACTIONS (3)
  - BRONCHOSPASM [None]
  - PERIORBITAL OEDEMA [None]
  - RASH [None]
